FAERS Safety Report 9559185 (Version 1)
Quarter: 2013Q3

REPORT INFORMATION
  Report Type: Spontaneous
  Country: US (occurrence: None)
  Receive Date: 20130924
  Receipt Date: 20130924
  Transmission Date: 20140515
  Serious: Yes (Disabling, Other)
  Sender: FDA-Public Use
  Company Number: IPC201309-000362

PATIENT
  Age: 46 Year
  Sex: Female
  Weight: 83.91 kg

DRUGS (8)
  1. PROPRANOLOL HYDROCHLORIDE [Suspect]
     Indication: MIGRAINE
     Dosage: INITIAL: 20 MG
     Dates: start: 201305
  2. PROPRANOLOL HYDROCHLORIDE [Suspect]
     Indication: HEADACHE
     Dosage: INITIAL: 20 MG
     Dates: start: 201305
  3. PROPRANOLOL HYDROCHLORIDE [Suspect]
     Indication: BLOOD PRESSURE
     Dosage: INITIAL: 20 MG
     Dates: start: 201305
  4. LISINOPRIL [Suspect]
     Indication: BLOOD PRESSURE
     Dosage: 10 MG, ONCE A DAY?
     Dates: start: 201012, end: 201305
  5. LYRICA [Suspect]
     Indication: FIBROMYALGIA
     Dosage: 75 MG, TWICE A DAY
  6. ZANAFLEX (TIZANIDINE) (TIZANIDINE) [Concomitant]
  7. HYDROCODONE (HYDROCODONE BITARTRATE) (HYDROCODONE BITARTRATE) [Concomitant]
  8. LORTAB (ACETAMINOPHEN, HYDROCODONE BITARTRATE) (ACETAMINOPHEN, HYDROCODONE BITARTRATE) [Concomitant]

REACTIONS (16)
  - Blood pressure decreased [None]
  - Varicose vein [None]
  - Varicose vein ruptured [None]
  - Local swelling [None]
  - Abdominal pain upper [None]
  - Insomnia [None]
  - Fall [None]
  - Limb injury [None]
  - Red blood cell count increased [None]
  - White blood cell count increased [None]
  - Glycosylated haemoglobin increased [None]
  - Blood cholesterol increased [None]
  - Restlessness [None]
  - Pain in extremity [None]
  - Pain in extremity [None]
  - Neck pain [None]
